FAERS Safety Report 7922567-9 (Version None)
Quarter: 2011Q4

REPORT INFORMATION
  Report Type: 
  Country: None (occurrence: None)
  Receive Date: 20111117
  Receipt Date: 20110122
  Transmission Date: 20120403
  Serious: No
  Sender: FDA-Public Use
  Company Number: US-AMGEN-USASP2011001791

PATIENT
  Age: 71 Year
  Sex: Female

DRUGS (2)
  1. ENBREL [Suspect]
     Indication: RHEUMATOID ARTHRITIS
     Dosage: 50 MG, QWK
     Dates: start: 20100823, end: 20110110
  2. ENBREL [Suspect]
     Dosage: 50 MG, UNK
     Route: 058
     Dates: start: 20101010

REACTIONS (2)
  - PAIN IN EXTREMITY [None]
  - VULVA CYST [None]
